FAERS Safety Report 7952728-4 (Version None)
Quarter: 2011Q4

REPORT INFORMATION
  Report Type: 
  Country: None (occurrence: None)
  Receive Date: 20111201
  Receipt Date: 20111128
  Transmission Date: 20120403
  Serious: Yes (Other)
  Sender: FDA-Public Use
  Company Number: MY-ABBOTT-11P-101-0877554-00

PATIENT
  Age: 51 Year
  Sex: Female

DRUGS (3)
  1. WARFARIN SODIUM [Concomitant]
     Indication: PRODUCT USED FOR UNKNOWN INDICATION
  2. INNOHEP [Concomitant]
     Indication: ANTICOAGULANT THERAPY
  3. LEUPROLIDE ACETATE [Suspect]
     Indication: DYSFUNCTIONAL UTERINE BLEEDING
     Route: 050
     Dates: start: 20111001, end: 20111001

REACTIONS (1)
  - INTERNATIONAL NORMALISED RATIO DECREASED [None]
